FAERS Safety Report 9171118 (Version 3)
Quarter: 2013Q2

REPORT INFORMATION
  Report Type: Spontaneous
  Country: GB (occurrence: GB)
  Receive Date: 20130319
  Receipt Date: 20130614
  Transmission Date: 20140414
  Serious: Yes (Life-Threatening, Hospitalization)
  Sender: FDA-Public Use
  Company Number: PHFR2013GB001724

PATIENT
  Age: 51 Year
  Sex: Female

DRUGS (10)
  1. CLOZARIL [Suspect]
     Indication: SCHIZOPHRENIA
     Dosage: UNK
     Route: 048
     Dates: start: 20010701
  2. CLOZARIL [Suspect]
     Dosage: 350 MG,
     Route: 048
  3. OMEPRAZOLE [Concomitant]
     Indication: DYSPEPSIA
     Dosage: 10 MG, QD
  4. KWELLS [Concomitant]
     Indication: SALIVARY HYPERSECRETION
     Dosage: 300 UG, QD
  5. DEPAKOTE [Concomitant]
     Indication: DEPRESSION
     Dosage: 500 MG AT MORNING AND 100 MG AT NIGHT
  6. VENLAFAXINE [Concomitant]
     Indication: DEPRESSION
     Dosage: 75 MG, QD
  7. ASPIRIN [Concomitant]
     Dosage: 75 MG, QD
  8. ZOPICLONE [Concomitant]
     Indication: HYPOTONIA
     Dosage: 75 MG, AT NIGHT
  9. LACTULOSE [Concomitant]
     Indication: CONSTIPATION
     Dosage: 10 MG, BID
  10. LEVOTHYROXINE [Concomitant]
     Indication: THYROID DISORDER
     Dosage: 1000 UG, QD

REACTIONS (2)
  - Infection [Unknown]
  - Pneumonia [Recovered/Resolved]
